FAERS Safety Report 19187281 (Version 2)
Quarter: 2021Q2

REPORT INFORMATION
  Report Type: Spontaneous
  Country: US (occurrence: US)
  Receive Date: 20210428
  Receipt Date: 20210625
  Transmission Date: 20210717
  Serious: No
  Sender: FDA-Public Use
  Company Number: US-SA-2021SA136591

PATIENT
  Sex: Female

DRUGS (1)
  1. AUBAGIO [Suspect]
     Active Substance: TERIFLUNOMIDE
     Indication: MULTIPLE SCLEROSIS
     Dosage: 14 MG, QD
     Route: 048
     Dates: start: 20180518

REACTIONS (4)
  - Musculoskeletal stiffness [Not Recovered/Not Resolved]
  - Headache [Unknown]
  - Muscle spasticity [Not Recovered/Not Resolved]
  - Bladder disorder [Not Recovered/Not Resolved]
